FAERS Safety Report 7751757-3 (Version None)
Quarter: 2011Q3

REPORT INFORMATION
  Report Type: 
  Country: None (occurrence: None)
  Receive Date: 20110915
  Receipt Date: 20110912
  Transmission Date: 20111222
  Serious: No
  Sender: FDA-Public Use
  Company Number: US-BIOGENIDEC-2011BI035058

PATIENT
  Age: 50 Year
  Sex: Female

DRUGS (1)
  1. AVONEX [Suspect]
     Indication: MULTIPLE SCLEROSIS
     Route: 030
     Dates: start: 20040601

REACTIONS (6)
  - MUSCULOSKELETAL PAIN [None]
  - BONE DISORDER [None]
  - UNDERDOSE [None]
  - PAIN IN EXTREMITY [None]
  - ARTHRALGIA [None]
  - BACK PAIN [None]
